FAERS Safety Report 6211195-1 (Version None)
Quarter: 2009Q2

REPORT INFORMATION
  Report Type: 
  Country: None (occurrence: None)
  Receive Date: 20090602
  Receipt Date: 20090526
  Transmission Date: 20091009
  Serious: Yes (Other)
  Sender: FDA-Public Use
  Company Number: US-ALLERGAN-0907469US

PATIENT
  Age: 53 Year
  Sex: Female
  Weight: 72.562 kg

DRUGS (10)
  1. BOTULINUM TOXIN TYPE A [Suspect]
     Indication: MUSCLE SPASTICITY
     Dosage: 700 UNITS, SINGLE
     Route: 030
     Dates: start: 20051201, end: 20051201
  2. BOTULINUM TOXIN TYPE A [Suspect]
     Dosage: 500 UNITS, SINGLE
     Route: 030
     Dates: start: 20060301, end: 20060301
  3. BOTULINUM TOXIN TYPE A [Suspect]
     Dosage: 600 UNITS, SINGLE
     Route: 030
     Dates: start: 20060601, end: 20060601
  4. BOTULINUM TOXIN TYPE A [Suspect]
     Dosage: 800 UNITS, SINGLE
     Route: 030
     Dates: start: 20060901, end: 20060901
  5. BOTULINUM TOXIN TYPE A [Suspect]
     Dosage: 380 UNITS, SINGLE
     Route: 030
     Dates: start: 20070101, end: 20070101
  6. BOTULINUM TOXIN TYPE A [Suspect]
     Dosage: 400 UNITS, SINGLE
     Route: 030
     Dates: start: 20070601, end: 20070601
  7. BOTULINUM TOXIN TYPE A [Suspect]
     Dosage: 490 UNITS, SINGLE
     Route: 030
     Dates: start: 20071001, end: 20071001
  8. BOTULINUM TOXIN TYPE A [Suspect]
     Dosage: 500 UNITS, SINGLE
     Route: 030
     Dates: start: 20080101, end: 20080101
  9. ATORVASTATIN CALCIUM [Concomitant]
  10. ENALAPRIL MALEATE [Concomitant]

REACTIONS (3)
  - DRUG INEFFECTIVE [None]
  - FATIGUE [None]
  - HEMIPARESIS [None]
